FAERS Safety Report 23508763 (Version 1)
Quarter: 2024Q1

REPORT INFORMATION
  Report Type: Spontaneous
  Country: AR (occurrence: AR)
  Receive Date: 20240209
  Receipt Date: 20240209
  Transmission Date: 20240409
  Serious: Yes (Hospitalization)
  Sender: FDA-Public Use
  Company Number: AR-SA-SAC20240205001571

PATIENT
  Sex: Male

DRUGS (1)
  1. SABRIL [Suspect]
     Active Substance: VIGABATRIN
     Indication: Epilepsy
     Dosage: UNK
     Route: 065
     Dates: start: 202001

REACTIONS (7)
  - Poor feeding infant [Unknown]
  - Sleep disorder [Unknown]
  - Crying [Unknown]
  - Tooth extraction [Unknown]
  - Irritability [Unknown]
  - Tremor [Unknown]
  - Insomnia [Unknown]
